FAERS Safety Report 8053910-0 (Version None)
Quarter: 2012Q1

REPORT INFORMATION
  Report Type: 
  Country: None (occurrence: None)
  Receive Date: 20120118
  Receipt Date: 20120105
  Transmission Date: 20120608
  Serious: Yes (Hospitalization)
  Sender: FDA-Public Use
  Company Number: JP-ELI_LILLY_AND_COMPANY-JP201201001922

PATIENT
  Age: 59 Year
  Sex: Male

DRUGS (13)
  1. WARFARIN SODIUM [Concomitant]
  2. OXYCONTIN [Concomitant]
  3. GEMZAR [Suspect]
     Indication: PANCREATIC CARCINOMA STAGE IV
     Dosage: 2000 MG, OTHER
     Route: 042
     Dates: start: 20110829, end: 20110924
  4. MUCODYNE [Concomitant]
  5. LOSARTAN POTASSIUM [Concomitant]
  6. LASIX [Concomitant]
  7. CLARITHROMYCIN [Concomitant]
  8. RABEPRAZOLE SODIUM [Concomitant]
  9. GEMZAR [Suspect]
     Dosage: 1800 MG, OTHER
     Route: 042
     Dates: start: 20111001, end: 20111008
  10. KENTAN [Concomitant]
  11. MECOBALAMIN [Concomitant]
  12. AMLODIPINE [Concomitant]
  13. OXYCODONE HCL [Concomitant]
     Route: 048

REACTIONS (2)
  - PNEUMONITIS [None]
  - DEEP VEIN THROMBOSIS [None]
